FAERS Safety Report 10598729 (Version 3)
Quarter: 2015Q1

REPORT INFORMATION
  Report Type: Spontaneous
  Country: US (occurrence: US)
  Receive Date: 20141121
  Receipt Date: 20150217
  Transmission Date: 20150720
  Serious: Yes (Other)
  Sender: FDA-Public Use
  Company Number: US-PFIZER INC-2014316573

PATIENT
  Age: 59 Year
  Sex: Male
  Weight: 65 kg

DRUGS (1)
  1. VFEND [Suspect]
     Active Substance: VORICONAZOLE
     Indication: ASPERGILLUS INFECTION
     Dosage: 200 MG, 2X/DAY
     Dates: start: 20141114

REACTIONS (9)
  - Back pain [Unknown]
  - Oedema [Unknown]
  - Dyspnoea [Unknown]
  - Joint swelling [Unknown]
  - Drug ineffective [Unknown]
  - Fluid retention [Recovering/Resolving]
  - Cardiac murmur [Unknown]
  - Bronchiectasis [Unknown]
  - Asthenia [Unknown]
